FAERS Safety Report 20298779 (Version 2)
Quarter: 2022Q3

REPORT INFORMATION
  Report Type: Report from Study
  Country: ZA (occurrence: ZA)
  Receive Date: 20220105
  Receipt Date: 20220804
  Transmission Date: 20221026
  Serious: Yes (Other)
  Sender: FDA-Public Use
  Company Number: ZA-BAYER-2022A000829

PATIENT
  Sex: Male

DRUGS (13)
  1. EYLEA [Suspect]
     Active Substance: AFLIBERCEPT
     Indication: Age-related macular degeneration
     Dosage: 1 DF, ONCE BOTH EYES, SOLUTION FOR INJECTION
     Route: 031
     Dates: start: 20210316, end: 20210316
  2. EYLEA [Suspect]
     Active Substance: AFLIBERCEPT
     Dosage: 1 DF, ONCE BOTH EYES, SOLUTION FOR INJECTION
     Route: 031
     Dates: start: 20210506, end: 20210506
  3. EYLEA [Suspect]
     Active Substance: AFLIBERCEPT
     Dosage: 1 DF, ONCE BOTH EYES, SOLUTION FOR INJECTION
     Route: 031
     Dates: start: 20210624, end: 20210624
  4. EYLEA [Suspect]
     Active Substance: AFLIBERCEPT
     Dosage: 1 DF, ONCE BOTH EYES, SOLUTION FOR INJECTION
     Route: 031
     Dates: start: 20210819, end: 20210819
  5. EYLEA [Suspect]
     Active Substance: AFLIBERCEPT
     Dosage: 1 DF, ONCE BOTH EYES, SOLUTION FOR INJECTION
     Route: 031
     Dates: start: 20211014, end: 20211014
  6. EYLEA [Suspect]
     Active Substance: AFLIBERCEPT
     Dosage: 1 DF, ONCE BOTH EYES, SOLUTION FOR INJECTION
     Route: 031
     Dates: start: 20211214, end: 20211214
  7. EYLEA [Suspect]
     Active Substance: AFLIBERCEPT
     Dosage: 1 DF, ONCE BOTH EYES, SOLUTION FOR INJECTION
     Route: 031
     Dates: start: 20220125, end: 20220125
  8. EYLEA [Suspect]
     Active Substance: AFLIBERCEPT
     Dosage: 1 DF, ONCE BOTH EYES, SOLUTION FOR INJECTION
     Route: 031
     Dates: start: 20220222, end: 20220222
  9. EYLEA [Suspect]
     Active Substance: AFLIBERCEPT
     Dosage: 1 DF, ONCE BOTH EYES, SOLUTION FOR INJECTION
     Route: 031
     Dates: start: 20220322, end: 20220322
  10. EYLEA [Suspect]
     Active Substance: AFLIBERCEPT
     Dosage: 1 DF, ONCE RIGHT EYE, SOLUTION FOR INJECTION
     Route: 031
     Dates: start: 20220426, end: 20220426
  11. EYLEA [Suspect]
     Active Substance: AFLIBERCEPT
     Dosage: 1 DF, ONCE RIGHT EYE, SOLUTION FOR INJECTION
     Route: 031
     Dates: start: 20220524, end: 20220524
  12. EYLEA [Suspect]
     Active Substance: AFLIBERCEPT
     Dosage: 1 DF, ONCE RIGHT EYE, SOLUTION FOR INJECTION
     Route: 031
     Dates: start: 20220630, end: 20220630
  13. EYLEA [Suspect]
     Active Substance: AFLIBERCEPT
     Dosage: CYCLE 5, RIGHT EYE, SOLUTION FOR INJECTION
     Route: 031
     Dates: start: 2022

REACTIONS (3)
  - Blindness unilateral [Not Recovered/Not Resolved]
  - Eye haemorrhage [Unknown]
  - Wrong schedule [Not Recovered/Not Resolved]

NARRATIVE: CASE EVENT DATE: 20210316
